FAERS Safety Report 5653118-X (Version None)
Quarter: 2008Q1

REPORT INFORMATION
  Report Type: 
  Country: None (occurrence: None)
  Receive Date: 20080306
  Receipt Date: 20080228
  Transmission Date: 20080703
  Serious: Yes (Hospitalization)
  Sender: FDA-Public Use
  Company Number: US-ABBOTT-08P-163-0436376-00

PATIENT
  Sex: Female
  Weight: 41.768 kg

DRUGS (4)
  1. HUMIRA [Suspect]
     Indication: RHEUMATOID ARTHRITIS
     Dosage: SYRINGE
     Route: 058
     Dates: start: 20040320, end: 20050505
  2. HUMIRA [Suspect]
     Dosage: PEN
     Route: 058
     Dates: start: 20070502
  3. METHOTREXATE [Suspect]
     Indication: DRUG USE FOR UNKNOWN INDICATION
  4. LEFLUNOMIDE [Suspect]
     Indication: DRUG USE FOR UNKNOWN INDICATION

REACTIONS (6)
  - ANOREXIA [None]
  - ERYTHEMA [None]
  - INFECTION [None]
  - ORAL INTAKE REDUCED [None]
  - PYREXIA [None]
  - WEIGHT DECREASED [None]
